FAERS Safety Report 23142181 (Version 5)
Quarter: 2023Q4

REPORT INFORMATION
  Report Type: Spontaneous
  Country: JP (occurrence: JP)
  Receive Date: 20231103
  Receipt Date: 20231212
  Transmission Date: 20240110
  Serious: No
  Sender: FDA-Public Use
  Company Number: JP-UCBJ-CD202311155UCBPHAPROD

PATIENT
  Age: 5 Year
  Sex: Male
  Weight: 21 kg

DRUGS (13)
  1. VIMPAT [Suspect]
     Active Substance: LACOSAMIDE
     Indication: Epilepsy
     Dosage: 30 MILLIGRAM, ONCE DAILY (QD)
     Route: 048
     Dates: start: 202110, end: 202111
  2. VIMPAT [Suspect]
     Active Substance: LACOSAMIDE
     Indication: Partial seizures
     Dosage: 30 MILLIGRAM, 12 HOURS, 2X/DAY (BID)
     Route: 048
     Dates: start: 20211108, end: 20220124
  3. VIMPAT [Suspect]
     Active Substance: LACOSAMIDE
     Dosage: 30 MILLIGRAM, ONCE DAILY (QD)
     Route: 048
     Dates: start: 20220124, end: 20221219
  4. VIMPAT [Suspect]
     Active Substance: LACOSAMIDE
     Dosage: 20 MILLIGRAM, 2X/DAY (BID)
     Route: 048
     Dates: start: 20221219, end: 20230123
  5. VIMPAT [Suspect]
     Active Substance: LACOSAMIDE
     Dosage: 25 MILLIGRAM, 2X/DAY (BID)
     Route: 048
     Dates: start: 20230123, end: 20230227
  6. VIMPAT [Suspect]
     Active Substance: LACOSAMIDE
     Dosage: 35 MILLIGRAM, 2X/DAY (BID)
     Route: 048
     Dates: start: 20230427, end: 20230501
  7. VIMPAT [Suspect]
     Active Substance: LACOSAMIDE
     Dosage: 40 MILLIGRAM, 2X/DAY (BID)
     Route: 048
     Dates: start: 20230501, end: 20230724
  8. VIMPAT [Suspect]
     Active Substance: LACOSAMIDE
     Dosage: 45 MILLIGRAM, 2X/DAY (BID)
     Route: 048
     Dates: start: 20230724, end: 20230807
  9. VIMPAT [Suspect]
     Active Substance: LACOSAMIDE
     Dosage: 50 MILLIGRAM, 2X/DAY (BID)
     Route: 048
     Dates: start: 20230807, end: 20230821
  10. VIMPAT [Suspect]
     Active Substance: LACOSAMIDE
     Dosage: 55 MILLIGRAM, 2X/DAY (BID)
     Route: 048
     Dates: start: 20230821, end: 20230904
  11. VIMPAT [Suspect]
     Active Substance: LACOSAMIDE
     Dosage: 60 MILLIGRAM, 12 HOURS, 2X/DAY (BID)
     Route: 048
     Dates: start: 20230904, end: 20231106
  12. VIMPAT [Suspect]
     Active Substance: LACOSAMIDE
     Dosage: 50 MILLIGRAM, 2X/DAY (BID)
     Route: 048
     Dates: start: 20231106
  13. VIMPAT [Suspect]
     Active Substance: LACOSAMIDE
     Dosage: 30 MILLIGRAM, ONCE DAILY (QD)
     Route: 048
     Dates: start: 20230227, end: 20230327

REACTIONS (5)
  - Aggression [Unknown]
  - Agitation [Not Recovered/Not Resolved]
  - Anger [Not Recovered/Not Resolved]
  - Drug ineffective [Unknown]
  - Off label use [Unknown]

NARRATIVE: CASE EVENT DATE: 20211108
